FAERS Safety Report 18108108 (Version 1)
Quarter: 2020Q3

REPORT INFORMATION
  Report Type: Spontaneous
  Country: GB (occurrence: GB)
  Receive Date: 20200803
  Receipt Date: 20200803
  Transmission Date: 20201103
  Serious: Yes (Death)
  Sender: FDA-Public Use
  Company Number: GB-DSJP-DSE-2020-121790

PATIENT

DRUGS (1)
  1. EDOXABAN [Suspect]
     Active Substance: EDOXABAN TOSYLATE
     Indication: PRODUCT USED FOR UNKNOWN INDICATION
     Dosage: UNK

REACTIONS (5)
  - Contusion [Unknown]
  - Acquired haemophilia [Unknown]
  - Haematuria [Unknown]
  - Death [Fatal]
  - Activated partial thromboplastin time prolonged [Unknown]
